FAERS Safety Report 15788620 (Version 1)
Quarter: 2019Q1

REPORT INFORMATION
  Report Type: Spontaneous
  Country: US (occurrence: US)
  Receive Date: 20190104
  Receipt Date: 20190104
  Transmission Date: 20190417
  Serious: Yes (Death, Hospitalization)
  Sender: FDA-Public Use
  Company Number: US-ASTRAZENECA-2019SE00106

PATIENT
  Age: 41 Year
  Sex: Male

DRUGS (4)
  1. DIPHENHYDRAMINE. [Suspect]
     Active Substance: DIPHENHYDRAMINE
     Route: 048
  2. QUETIAPINE. [Suspect]
     Active Substance: QUETIAPINE
     Route: 048
  3. ALCOHOL. [Suspect]
     Active Substance: ALCOHOL
     Route: 048
  4. VENLAFAXINE [Suspect]
     Active Substance: VENLAFAXINE HYDROCHLORIDE
     Route: 048

REACTIONS (3)
  - Toxicity to various agents [Fatal]
  - Completed suicide [Fatal]
  - Cardio-respiratory arrest [Fatal]
